FAERS Safety Report 11817048 (Version 2)
Quarter: 2019Q2

REPORT INFORMATION
  Report Type: Spontaneous
  Country: US (occurrence: US)
  Receive Date: 20151210
  Receipt Date: 20190614
  Transmission Date: 20190711
  Serious: No
  Sender: FDA-Public Use
  Company Number: US-JNJFOC-20151114563

PATIENT
  Sex: Male

DRUGS (4)
  1. RISPERDAL [Suspect]
     Active Substance: RISPERIDONE
     Indication: ATTENTION DEFICIT/HYPERACTIVITY DISORDER
     Dosage: 0.25 MG, 0.5 MG, 1 MG, 2 MG
     Route: 048
     Dates: start: 2000, end: 2008
  2. RISPERIDONE. [Suspect]
     Active Substance: RISPERIDONE
     Indication: PRODUCT USED FOR UNKNOWN INDICATION
     Route: 048
  3. RISPERDAL [Suspect]
     Active Substance: RISPERIDONE
     Indication: AUTISM SPECTRUM DISORDER
     Dosage: 0.25 MG, 0.5 MG, 1 MG, 2 MG
     Route: 048
     Dates: start: 2000, end: 2008
  4. RISPERDAL [Suspect]
     Active Substance: RISPERIDONE
     Indication: SOMNOLENCE
     Dosage: 0.25 MG, 0.5 MG, 1 MG, 2 MG
     Route: 048
     Dates: start: 2000, end: 2008

REACTIONS (3)
  - Abnormal weight gain [Unknown]
  - Somnolence [Unknown]
  - Gynaecomastia [Unknown]

NARRATIVE: CASE EVENT DATE: 2002
